FAERS Safety Report 8717911 (Version 9)
Quarter: 2012Q4

REPORT INFORMATION
  Report Type: Report from Study
  Country: AU (occurrence: AU)
  Receive Date: 20120810
  Receipt Date: 20121119
  Transmission Date: 20130627
  Serious: Yes (Hospitalization)
  Sender: FDA-Public Use
  Company Number: AU-ROCHE-1098923

PATIENT
  Age: 62 Year
  Sex: Female
  Weight: 55 kg

DRUGS (16)
  1. VEMURAFENIB [Suspect]
     Indication: MALIGNANT MELANOMA
     Dosage: Date of last dose prior to SAE : 16/Jan/2012
     Route: 048
     Dates: start: 20111222
  2. VEMURAFENIB [Suspect]
     Dosage: Date of last dose prior to SAE : 30/Mar/2012
     Route: 048
     Dates: start: 20120128
  3. VEMURAFENIB [Suspect]
     Dosage: Date of last dose prior to SAE : 23/Jul/2012
     Route: 048
     Dates: start: 20120517, end: 20120723
  4. CLOTRIMAZOLE [Concomitant]
     Dosage: unknown %
     Route: 065
     Dates: start: 20120406, end: 20120409
  5. FUNGILIN LOZENGES [Concomitant]
     Route: 065
     Dates: start: 20120601, end: 20120807
  6. FLUCONAZOLE [Concomitant]
     Route: 065
     Dates: start: 20120724, end: 20120807
  7. FLUCONAZOLE [Concomitant]
     Route: 065
     Dates: start: 20120703, end: 20120801
  8. SODIBIC [Concomitant]
     Route: 065
     Dates: start: 20120531
  9. PHENERGAN [Concomitant]
     Route: 065
     Dates: start: 20120119
  10. CLARITINE [Concomitant]
     Route: 065
     Dates: start: 20120122
  11. DOXYCYCLINE [Concomitant]
     Route: 065
     Dates: start: 20120126
  12. TEMAZEPAM [Concomitant]
     Route: 065
     Dates: start: 20120130
  13. PANADOL OSTEO [Concomitant]
     Route: 065
     Dates: start: 2010
  14. OATMEAL [Concomitant]
     Route: 065
     Dates: start: 20120109
  15. NILSTAT [Concomitant]
     Route: 065
     Dates: start: 20120530
  16. AMPHOTERICIN LOZENGES [Concomitant]
     Route: 065
     Dates: start: 20120601, end: 20120807

REACTIONS (2)
  - Mouth ulceration [Recovered/Resolved]
  - Colitis [Recovered/Resolved]
